FAERS Safety Report 6754097-4 (Version None)
Quarter: 2010Q2

REPORT INFORMATION
  Report Type: 
  Country: None (occurrence: None)
  Receive Date: 20100520
  Receipt Date: 20090819
  Transmission Date: 20101027
  Serious: Yes (Other)
  Sender: FDA-Public Use
  Company Number: 2009208564

PATIENT
  Age: 54 Year
  Sex: Female
  Weight: 56 kg

DRUGS (19)
  1. PROVERA [Suspect]
     Indication: HORMONE REPLACEMENT THERAPY
     Dosage: 5 MG, ORAL ; 2.5 MG, ORAL ; 5 MG, ORAL ; 2.5 MG
     Route: 048
     Dates: end: 19920501
  2. PROVERA [Suspect]
     Indication: HORMONE REPLACEMENT THERAPY
     Dosage: 5 MG, ORAL ; 2.5 MG, ORAL ; 5 MG, ORAL ; 2.5 MG
     Route: 048
     Dates: start: 19920501, end: 19940501
  3. PROVERA [Suspect]
     Indication: HORMONE REPLACEMENT THERAPY
     Dosage: 5 MG, ORAL ; 2.5 MG, ORAL ; 5 MG, ORAL ; 2.5 MG
     Route: 048
     Dates: start: 19940501, end: 19970701
  4. PROVERA [Suspect]
     Indication: HORMONE REPLACEMENT THERAPY
     Dosage: 5 MG, ORAL ; 2.5 MG, ORAL ; 5 MG, ORAL ; 2.5 MG
     Route: 048
     Dates: start: 19970701, end: 19990201
  5. OGEN [Suspect]
     Indication: HORMONE REPLACEMENT THERAPY
     Dosage: 0.625 MG
     Dates: start: 19931101, end: 19931201
  6. PREMARIN [Suspect]
     Indication: HORMONE REPLACEMENT THERAPY
     Dosage: 0.3 MG ; 0.625 MG ; 0.625 MG ; 0.3 MG ; 0.3 MG
     Dates: end: 19900901
  7. PREMARIN [Suspect]
     Indication: HORMONE REPLACEMENT THERAPY
     Dosage: 0.3 MG ; 0.625 MG ; 0.625 MG ; 0.3 MG ; 0.3 MG
     Dates: start: 19900701, end: 19930401
  8. PREMARIN [Suspect]
     Indication: HORMONE REPLACEMENT THERAPY
     Dosage: 0.3 MG ; 0.625 MG ; 0.625 MG ; 0.3 MG ; 0.3 MG
     Dates: start: 19930401, end: 19931101
  9. PREMARIN [Suspect]
     Indication: HORMONE REPLACEMENT THERAPY
     Dosage: 0.3 MG ; 0.625 MG ; 0.625 MG ; 0.3 MG ; 0.3 MG
     Dates: start: 19931201, end: 19970901
  10. PREMARIN [Suspect]
     Indication: HORMONE REPLACEMENT THERAPY
     Dosage: 0.3 MG ; 0.625 MG ; 0.625 MG ; 0.3 MG ; 0.3 MG
     Dates: start: 19970901, end: 19990201
  11. PREMPRO [Suspect]
     Indication: HORMONE REPLACEMENT THERAPY
     Dosage: 0.625 MG ; 2.5 MG
     Dates: start: 19980101, end: 20030101
  12. PREMPRO [Suspect]
     Indication: HORMONE REPLACEMENT THERAPY
     Dosage: 0.625 MG ; 2.5 MG
     Dates: start: 19980101, end: 20030101
  13. PREMPRO [Suspect]
     Indication: HORMONE REPLACEMENT THERAPY
     Dosage: 0.625 MG ; 2.5 MG
     Dates: start: 20020101, end: 20030101
  14. FEMHRT [Suspect]
     Indication: HORMONE REPLACEMENT THERAPY
     Dosage: 1 MG ; 5 MG
     Dates: start: 20020101, end: 20030101
  15. FEMHRT [Suspect]
     Indication: HORMONE REPLACEMENT THERAPY
     Dosage: 1 MG ; 5 MG
     Dates: start: 19730101
  16. ESTINYL [Suspect]
     Indication: HORMONE REPLACEMENT THERAPY
     Dates: start: 19730101
  17. ESTROGENS SOL/INJ [Suspect]
     Indication: HORMONE REPLACEMENT THERAPY
     Dosage: 0.02 MG
     Dates: start: 19820101, end: 19820101
  18. LIBRIUM [Concomitant]
  19. ATIVAN [Concomitant]

REACTIONS (2)
  - BREAST CANCER [None]
  - ENDOMETRIAL CANCER [None]
